FAERS Safety Report 9303195 (Version 4)
Quarter: 2013Q3

REPORT INFORMATION
  Report Type: Spontaneous
  Country: US (occurrence: US)
  Receive Date: 20130522
  Receipt Date: 20130724
  Transmission Date: 20140515
  Serious: Yes (Other)
  Sender: FDA-Public Use
  Company Number: US-PFIZER INC-2013157652

PATIENT
  Age: 33 Year
  Sex: Female

DRUGS (4)
  1. NEURONTIN [Suspect]
     Indication: NEUROPATHY PERIPHERAL
     Dosage: 300 MG, 3X/DAY
     Route: 048
     Dates: start: 20111226, end: 20111229
  2. OMEPRAZOLE [Concomitant]
     Dosage: 20 MG, 1X/DAY
  3. HYDROCODONE W/ACETAMINOPHEN [Concomitant]
     Dosage: 4X/DAY
  4. FOLIC ACID [Concomitant]
     Dosage: 1 MG, 2X/DAY (1)

REACTIONS (2)
  - Oedema peripheral [Recovered/Resolved]
  - Drug hypersensitivity [Unknown]
